FAERS Safety Report 8068982-7 (Version None)
Quarter: 2011Q4

REPORT INFORMATION
  Report Type: 
  Country: None (occurrence: None)
  Receive Date: 20111221
  Receipt Date: 20110310
  Transmission Date: 20120403
  Serious: Yes (Other)
  Sender: FDA-Public Use
  Company Number: PHHY2010US75200

PATIENT
  Sex: Male
  Weight: 63.7 kg

DRUGS (12)
  1. CALCIUM CARBONATE [Concomitant]
  2. EXJADE [Suspect]
     Indication: MYELODYSPLASTIC SYNDROME
     Dosage: 1000 MG, DAILY, ORAL
     Route: 048
     Dates: start: 20091016
  3. TOPROL-XL [Concomitant]
  4. LEVOTHYROXINE SODIUM [Concomitant]
  5. VIDAZA (AZACITINE) [Concomitant]
  6. MAGNESIUM (V) [Concomitant]
  7. CENTRUM SILVER (ASCORBIC ACID, CALCIUM, MINERALS NOS, RETINOL, TOCOPHE [Concomitant]
  8. MONOPRIL [Concomitant]
  9. TESSALON [Concomitant]
  10. ARANESP [Concomitant]
  11. NEXIUM [Concomitant]
  12. TYLENOL PM (DIPHENHYDRAMINE, PARACETAMOL) [Concomitant]

REACTIONS (5)
  - CHEST PAIN [None]
  - WEIGHT DECREASED [None]
  - HAEMOGLOBIN DECREASED [None]
  - COUGH [None]
  - DIZZINESS [None]
